FAERS Safety Report 4773123-5 (Version None)
Quarter: 2005Q3

REPORT INFORMATION
  Report Type: 
  Country: None (occurrence: None)
  Receive Date: 20050919
  Receipt Date: 20050901
  Transmission Date: 20060218
  Serious: Yes (Hospitalization)
  Sender: FDA-Public Use
  Company Number: US-BRISTOL-MYERS SQUIBB COMPANY-13097001

PATIENT
  Age: 45 Year
  Sex: Male
  Weight: 72 kg

DRUGS (11)
  1. CETUXIMAB [Suspect]
     Indication: SQUAMOUS CELL CARCINOMA
     Dosage: INITIAL TX DATE: 10-AUG-05. TOTAL COURSE # TO DATE: 4. REMOVED FROM PROTOCOL ON 06-SEP-05.
     Route: 042
     Dates: start: 20050830, end: 20050830
  2. DOCETAXEL [Suspect]
     Indication: SQUAMOUS CELL CARCINOMA
  3. RADIATION THERAPY [Suspect]
     Indication: SQUAMOUS CELL CARCINOMA
     Dosage: LAST TX ADM ON 09-SEP-05. TOTAL DOSE: 38GY (# OF FRACTIONS: 33, # OF ELAPSED DAYS: 26).
     Dates: start: 20050831
  4. CETIRIZINE HCL [Concomitant]
  5. ROBITUSSIN [Concomitant]
  6. KEFLEX [Concomitant]
  7. LORTAB [Concomitant]
  8. AMBIEN [Concomitant]
  9. MOTRIN [Concomitant]
  10. ATIVAN [Concomitant]
  11. DURAGESIC-100 [Concomitant]
     Route: 062

REACTIONS (8)
  - ALANINE AMINOTRANSFERASE INCREASED [None]
  - ASPARTATE AMINOTRANSFERASE INCREASED [None]
  - BLOOD ALKALINE PHOSPHATASE INCREASED [None]
  - BLOOD GASES ABNORMAL [None]
  - GAMMA-GLUTAMYLTRANSFERASE INCREASED [None]
  - HYPERSENSITIVITY [None]
  - PLATELET COUNT DECREASED [None]
  - WHITE BLOOD CELL COUNT DECREASED [None]
